FAERS Safety Report 9539034 (Version 1)
Quarter: 2013Q3

REPORT INFORMATION
  Report Type: Spontaneous
  Country: US (occurrence: None)
  Receive Date: 20130917
  Receipt Date: 20130917
  Transmission Date: 20140515
  Serious: Yes (Hospitalization)
  Sender: FDA-Public Use
  Company Number: SYM-2013-10631

PATIENT
  Age: 3 Year
  Sex: Male

DRUGS (1)
  1. BUPROPION [Suspect]
     Indication: DEPRESSION
     Route: 048
     Dates: start: 20130203

REACTIONS (2)
  - Accidental exposure to product [None]
  - Accidental exposure to product by child [None]
